FAERS Safety Report 7597639-1 (Version None)
Quarter: 2011Q3

REPORT INFORMATION
  Report Type: 
  Country: None (occurrence: None)
  Receive Date: 20110708
  Receipt Date: 20110630
  Transmission Date: 20111222
  Serious: Yes (Other)
  Sender: FDA-Public Use
  Company Number: US-NOVOPROD-331157

PATIENT
  Sex: Female

DRUGS (1)
  1. LEVEMIR [Suspect]
     Indication: PRODUCT USED FOR UNKNOWN INDICATION
     Route: 058

REACTIONS (2)
  - BLOOD GLUCOSE INCREASED [None]
  - PANCREATIC CARCINOMA [None]
